FAERS Safety Report 4752518-X (Version None)
Quarter: 2005Q3

REPORT INFORMATION
  Report Type: 
  Country: None (occurrence: None)
  Receive Date: 20050823
  Receipt Date: 20050805
  Transmission Date: 20060218
  Serious: Yes (Death, Hospitalization)
  Sender: FDA-Public Use
  Company Number: US_0507119913

PATIENT
  Age: 46 Year
  Sex: Male
  Weight: 63 kg

DRUGS (1)
  1. OLANZAPINE [Suspect]
     Indication: SCHIZOPHRENIA
     Dosage: 17.5 MG/1 DAY
     Dates: start: 20050203, end: 20050705

REACTIONS (21)
  - ABDOMINAL PAIN [None]
  - ALANINE AMINOTRANSFERASE INCREASED [None]
  - ASCITES [None]
  - BLOOD ALKALINE PHOSPHATASE INCREASED [None]
  - BLOOD CREATININE INCREASED [None]
  - BLOOD GLUCOSE INCREASED [None]
  - BLOOD LACTATE DEHYDROGENASE INCREASED [None]
  - CARDIAC ARREST [None]
  - CHEST X-RAY ABNORMAL [None]
  - COMA [None]
  - DIARRHOEA [None]
  - DYSPNOEA [None]
  - FLATULENCE [None]
  - GRAND MAL CONVULSION [None]
  - HAEMOGLOBIN INCREASED [None]
  - NAUSEA [None]
  - PANCREATITIS ACUTE [None]
  - PNEUMONIA [None]
  - PULMONARY CONGESTION [None]
  - RESPIRATORY FAILURE [None]
  - WHITE BLOOD CELL COUNT INCREASED [None]
